FAERS Safety Report 13664332 (Version 5)
Quarter: 2018Q3

REPORT INFORMATION
  Report Type: Spontaneous
  Country: JP (occurrence: JP)
  Receive Date: 20170619
  Receipt Date: 20180924
  Transmission Date: 20181010
  Serious: Yes (Hospitalization, Other)
  Sender: FDA-Public Use
  Company Number: JP-JNJFOC-20170614652

PATIENT
  Age: 76 Year
  Sex: Male
  Weight: 72 kg

DRUGS (11)
  1. ALMETA [Concomitant]
     Active Substance: ALCLOMETASONE DIPROPIONATE
     Indication: PSORIASIS
     Route: 061
  2. STELARA [Suspect]
     Active Substance: USTEKINUMAB
     Indication: PSORIASIS
     Route: 058
     Dates: start: 20161226
  3. SALAZOSULFAPYRIDINE [Concomitant]
     Active Substance: SULFASALAZINE
     Indication: PSORIASIS
     Route: 065
  4. STELARA [Suspect]
     Active Substance: USTEKINUMAB
     Indication: PSORIASIS
     Route: 058
     Dates: start: 2015
  5. STELARA [Suspect]
     Active Substance: USTEKINUMAB
     Indication: PSORIASIS
     Route: 058
     Dates: start: 20170711
  6. STELARA [Suspect]
     Active Substance: USTEKINUMAB
     Indication: PSORIASIS
     Route: 058
     Dates: start: 20180321, end: 20180909
  7. CEFAZOLIN SODIUM. [Suspect]
     Active Substance: CEFAZOLIN SODIUM
     Indication: POSTOPERATIVE WOUND INFECTION
     Route: 041
     Dates: start: 20170605, end: 20170608
  8. AMPICILLIN SODIUM. [Suspect]
     Active Substance: AMPICILLIN SODIUM
     Indication: POSTOPERATIVE WOUND INFECTION
     Route: 041
     Dates: start: 20170609, end: 20170609
  9. THYRADIN [Concomitant]
     Active Substance: LEVOTHYROXINE
     Indication: HYPOTHYROIDISM
     Route: 048
  10. PIPERACILLIN AND TAZOBACTAM [Suspect]
     Active Substance: PIPERACILLIN SODIUM\TAZOBACTAM SODIUM
     Indication: CELLULITIS
     Route: 041
     Dates: start: 20170609, end: 20170619
  11. CELECOX [Concomitant]
     Active Substance: CELECOXIB
     Indication: OSTEOARTHRITIS
     Route: 048

REACTIONS (7)
  - Cellulitis [Recovering/Resolving]
  - Postoperative wound infection [Recovering/Resolving]
  - Urinary tract infection [Recovered/Resolved]
  - Pustular psoriasis [Recovered/Resolved]
  - Ureteric obstruction [Unknown]
  - Hydronephrosis [Unknown]
  - Erythrodermic psoriasis [Recovered/Resolved]

NARRATIVE: CASE EVENT DATE: 20170112
